FAERS Safety Report 14950694 (Version 1)
Quarter: 2018Q2

REPORT INFORMATION
  Report Type: Spontaneous
  Country: US (occurrence: US)
  Receive Date: 20180508
  Receipt Date: 20180508
  Transmission Date: 20180711
  Serious: Yes (Death)
  Sender: FDA-Public Use
  Company Number: None

PATIENT
  Age: 84 Year
  Sex: Male
  Weight: 79.38 kg

DRUGS (10)
  1. ASPIRIN. [Concomitant]
     Active Substance: ASPIRIN
  2. DILTIAZEM. [Concomitant]
     Active Substance: DILTIAZEM
  3. MULTI VITAMINS [Concomitant]
     Active Substance: VITAMINS
  4. AMIODARONE [Suspect]
     Active Substance: AMIODARONE
     Indication: HEART RATE
     Dosage: ?          QUANTITY:1 DF DOSAGE FORM;?
     Route: 048
     Dates: start: 201704, end: 201711
  5. FLOMAX [Concomitant]
     Active Substance: TAMSULOSIN HYDROCHLORIDE
  6. ZOLOFT [Concomitant]
     Active Substance: SERTRALINE HYDROCHLORIDE
  7. VITAMIN D [Concomitant]
     Active Substance: CHOLECALCIFEROL
  8. AMIODARONE [Suspect]
     Active Substance: AMIODARONE
     Indication: ATRIAL FIBRILLATION
     Dosage: ?          QUANTITY:1 DF DOSAGE FORM;?
     Route: 048
     Dates: start: 201704, end: 201711
  9. ATORVASTATIN [Concomitant]
     Active Substance: ATORVASTATIN
  10. WARFARIN [Concomitant]
     Active Substance: WARFARIN

REACTIONS (10)
  - Fall [None]
  - Traumatic lung injury [None]
  - Asthenia [None]
  - Oxygen saturation decreased [None]
  - Heart rate increased [None]
  - Toxicity to various agents [None]
  - Irritability [None]
  - Respiratory distress [None]
  - Decreased appetite [None]
  - Dyspnoea [None]

NARRATIVE: CASE EVENT DATE: 201712
